FAERS Safety Report 9989552 (Version 1)
Quarter: 2014Q1

REPORT INFORMATION
  Report Type: Spontaneous
  Country: US (occurrence: US)
  Receive Date: 20140310
  Receipt Date: 20140310
  Transmission Date: 20141002
  Serious: Yes (Other)
  Sender: FDA-Public Use
  Company Number: US-ABBVIE-13P-163-1136760-00

PATIENT
  Age: 65 Year
  Sex: Male
  Weight: 76.27 kg

DRUGS (11)
  1. HUMIRA [Suspect]
     Indication: PSORIASIS
     Dates: start: 2010, end: 2010
  2. HUMIRA [Suspect]
     Indication: PSORIATIC ARTHROPATHY
     Dates: start: 2010, end: 20130620
  3. METHOTREXATE [Concomitant]
     Indication: PSORIATIC ARTHROPATHY
     Dates: end: 201303
  4. METHOTREXATE [Concomitant]
     Dates: start: 201306
  5. KEPPRA [Concomitant]
     Indication: GRAND MAL CONVULSION
  6. FOLIC ACID [Concomitant]
     Indication: VITAMIN SUPPLEMENTATION
  7. NAPROSYN [Concomitant]
     Indication: PSORIATIC ARTHROPATHY
  8. PEPCID [Concomitant]
     Indication: PROPHYLAXIS
  9. PEPCID [Concomitant]
     Indication: GASTROOESOPHAGEAL REFLUX DISEASE
  10. MULTIVITAMIN [Concomitant]
     Indication: VITAMIN SUPPLEMENTATION
  11. FISH OIL [Concomitant]
     Indication: PRODUCT USED FOR UNKNOWN INDICATION

REACTIONS (2)
  - Lupus-like syndrome [Recovered/Resolved]
  - Rash [Recovered/Resolved]
